FAERS Safety Report 5330664-X (Version None)
Quarter: 2007Q2

REPORT INFORMATION
  Report Type: 
  Country: None (occurrence: None)
  Receive Date: 20070518
  Receipt Date: 20070518
  Transmission Date: 20071010
  Serious: Yes (Other)
  Sender: FDA-Public Use
  Company Number: None

PATIENT
  Age: 21 Year
  Sex: Female
  Weight: 63.5036 kg

DRUGS (1)
  1. EFFEXOR [Suspect]
     Indication: DEPRESSION

REACTIONS (5)
  - AMNESIA [None]
  - FALL [None]
  - GAIT DEVIATION [None]
  - MUSCULOSKELETAL STIFFNESS [None]
  - VISUAL DISTURBANCE [None]
